FAERS Safety Report 9366280 (Version 1)
Quarter: 2013Q2

REPORT INFORMATION
  Report Type: Spontaneous
  Country: US (occurrence: US)
  Receive Date: 20130625
  Receipt Date: 20130625
  Transmission Date: 20140414
  Serious: No
  Sender: FDA-Public Use
  Company Number: US-GLAXOSMITHKLINE-A0983410A

PATIENT
  Age: 86 Year
  Sex: Male

DRUGS (10)
  1. VERAMYST [Suspect]
     Indication: DYSPHONIA
     Dosage: 2SPR PER DAY
     Route: 045
     Dates: start: 20120701, end: 20120703
  2. FUROSEMIDE [Concomitant]
  3. BUPROPION [Concomitant]
  4. METFORMIN [Concomitant]
  5. SIMVASTATIN [Concomitant]
  6. ASPIRIN [Concomitant]
  7. FOLIC ACID [Concomitant]
  8. SPIRIVA [Concomitant]
  9. LISINOPRIL [Concomitant]
  10. SYMBICORT [Concomitant]

REACTIONS (3)
  - Dizziness [Recovering/Resolving]
  - Balance disorder [Unknown]
  - Abdominal discomfort [Unknown]
